FAERS Safety Report 7023625-6 (Version None)
Quarter: 2010Q3

REPORT INFORMATION
  Report Type: 
  Country: None (occurrence: None)
  Receive Date: 20100930
  Receipt Date: 20100930
  Transmission Date: 20110219
  Serious: Yes (Life-Threatening, Hospitalization)
  Sender: FDA-Public Use
  Company Number: None

PATIENT
  Age: 14 Year
  Sex: Male
  Weight: 40.8237 kg

DRUGS (5)
  1. ZYPREXA [Suspect]
     Dates: start: 20091120, end: 20100927
  2. ZYPREXA [Suspect]
  3. INDERAL [Suspect]
  4. BENADRYL [Suspect]
     Dosage: BENADRYL TWICE A DAY BUCCAL
     Route: 002
  5. RISPERIDONE [Suspect]
     Dosage: 4 YEARS TWICE A DAY BUCCAL
     Route: 002

REACTIONS (6)
  - ANAL FISSURE [None]
  - ANXIETY [None]
  - HAEMORRHOIDAL HAEMORRHAGE [None]
  - NERVOUS SYSTEM DISORDER [None]
  - RECTAL PROLAPSE [None]
  - URINARY HESITATION [None]
